FAERS Safety Report 7044182-4 (Version None)
Quarter: 2010Q4

REPORT INFORMATION
  Report Type: 
  Country: None (occurrence: None)
  Receive Date: 20101013
  Receipt Date: 20101011
  Transmission Date: 20110411
  Serious: No
  Sender: FDA-Public Use
  Company Number: US-PFIZER INC-2010129084

PATIENT
  Sex: Female
  Weight: 81.633 kg

DRUGS (6)
  1. TRIAZOLAM [Suspect]
     Indication: AGITATION
     Dosage: 0.25 MG, 2X/DAY
     Route: 048
     Dates: start: 20100901
  2. TRIAZOLAM [Suspect]
     Indication: MOOD ALTERED
  3. ARICEPT [Suspect]
     Indication: DEMENTIA ALZHEIMER'S TYPE
     Dosage: 5 MG, DAILY
     Route: 048
  4. SERTRALINE [Concomitant]
     Dosage: UNK
  5. GABAPENTIN [Concomitant]
     Dosage: UNK
  6. ACETYLSALICYLIC ACID [Concomitant]
     Dosage: UNK

REACTIONS (1)
  - SOMNOLENCE [None]
